FAERS Safety Report 7053411-2 (Version None)
Quarter: 2010Q4

REPORT INFORMATION
  Report Type: 
  Country: None (occurrence: None)
  Receive Date: 20101020
  Receipt Date: 20101007
  Transmission Date: 20110411
  Serious: Yes (Other)
  Sender: FDA-Public Use
  Company Number: PHHY2009IE50300

PATIENT
  Sex: Female

DRUGS (7)
  1. CLOZARIL [Suspect]
     Indication: SCHIZOPHRENIA
     Dosage: UNK
     Route: 048
     Dates: start: 20090612
  2. CLOZARIL [Suspect]
     Dosage: 425 MG, QD
     Dates: start: 20090901
  3. CLOZARIL [Suspect]
     Dosage: 500 MG, QD
     Route: 048
  4. CLOZARIL [Suspect]
     Dosage: 400 MG, QD
     Route: 048
  5. CLOZARIL [Suspect]
     Dosage: 175 MG
     Route: 048
  6. CLOZARIL [Suspect]
     Dosage: 25 MG
     Route: 048
  7. LAMOTRIGINE [Concomitant]

REACTIONS (6)
  - ALANINE AMINOTRANSFERASE INCREASED [None]
  - ANTIPSYCHOTIC DRUG LEVEL INCREASED [None]
  - BLOOD ALKALINE PHOSPHATASE INCREASED [None]
  - GAMMA-GLUTAMYLTRANSFERASE INCREASED [None]
  - HEPATIC STEATOSIS [None]
  - LIVER FUNCTION TEST ABNORMAL [None]
